FAERS Safety Report 7814073-7 (Version None)
Quarter: 2011Q4

REPORT INFORMATION
  Report Type: 
  Country: None (occurrence: None)
  Receive Date: 20111014
  Receipt Date: 20111005
  Transmission Date: 20120403
  Serious: Yes (Death, Hospitalization)
  Sender: FDA-Public Use
  Company Number: AU-JNJFOC-20110904222

PATIENT
  Sex: Male

DRUGS (20)
  1. STELARA [Suspect]
     Route: 058
     Dates: start: 20100709
  2. MELIZIDE [Concomitant]
  3. HYDRENE [Concomitant]
  4. STELARA [Suspect]
     Route: 058
     Dates: start: 20101004
  5. METOPROLOL TARTRATE [Concomitant]
  6. ATACAND [Concomitant]
  7. METFORMIN HCL [Concomitant]
  8. PROGOUT [Concomitant]
  9. FERRO-GRADUMET [Concomitant]
  10. STELARA [Suspect]
     Route: 058
     Dates: start: 20101223
  11. STELARA [Suspect]
     Route: 058
     Dates: start: 20110328
  12. PRAVACHOL [Concomitant]
  13. WARFARIN SODIUM [Concomitant]
  14. STELARA [Suspect]
     Route: 058
     Dates: start: 20100416
  15. LEVOTHYROXINE SODIUM [Concomitant]
  16. ACCUPRIL [Concomitant]
  17. STELARA [Suspect]
     Route: 058
     Dates: start: 20110627
  18. STELARA [Suspect]
     Indication: PSORIASIS
     Route: 058
     Dates: start: 20100319
  19. PANTOPRAZOLE [Concomitant]
  20. TRAMADOL HYDROCHLORIDE [Concomitant]

REACTIONS (3)
  - ADVERSE DRUG REACTION [None]
  - PLEURAL EFFUSION [None]
  - PNEUMONIA [None]
